FAERS Safety Report 7031677-2 (Version None)
Quarter: 2010Q4

REPORT INFORMATION
  Report Type: 
  Country: None (occurrence: None)
  Receive Date: 20101004
  Receipt Date: 20100917
  Transmission Date: 20110411
  Serious: Yes (Other)
  Sender: FDA-Public Use
  Company Number: 2010S1000788

PATIENT
  Age: 57 Year
  Sex: Male
  Weight: 60 kg

DRUGS (9)
  1. LIVALO [Suspect]
     Indication: DYSLIPIDAEMIA
     Dosage: 1 MG;1X;PO
     Route: 048
     Dates: start: 20100731, end: 20100830
  2. BEZAFIBRATE (BEZAFIBRATE) [Suspect]
     Indication: HYPERLIPIDAEMIA
     Dosage: 200 MG;BID;PO
     Route: 048
     Dates: start: 20090801, end: 20100830
  3. ATELEC [Concomitant]
  4. GASLON [Concomitant]
  5. TELMISARTAN [Concomitant]
  6. LIMAS [Concomitant]
  7. HIRNAMIN /00038601/ [Concomitant]
  8. ALTAT [Concomitant]
  9. AROTINOLOL HYDROCHLORIDE [Concomitant]

REACTIONS (1)
  - RHABDOMYOLYSIS [None]
